FAERS Safety Report 4772778-9 (Version None)
Quarter: 2005Q3

REPORT INFORMATION
  Report Type: 
  Country: None (occurrence: None)
  Receive Date: 20050919
  Receipt Date: 20050825
  Transmission Date: 20060218
  Serious: Yes (Hospitalization, Disabling, Other)
  Sender: FDA-Public Use
  Company Number: BE-GLAXOSMITHKLINE-B0392782A

PATIENT
  Age: 23 Year
  Sex: Female
  Weight: 60 kg

DRUGS (2)
  1. FLIXONASE [Suspect]
     Indication: CHRONIC SINUSITIS
     Route: 045
     Dates: start: 20050822, end: 20050822
  2. MERCILON [Concomitant]
     Indication: DRUG USE FOR UNKNOWN INDICATION
     Route: 065

REACTIONS (10)
  - ANAPHYLACTIC REACTION [None]
  - FACE OEDEMA [None]
  - HEART RATE INCREASED [None]
  - HYPERSENSITIVITY [None]
  - MUSCLE RIGIDITY [None]
  - MUSCULOSKELETAL STIFFNESS [None]
  - PHARYNGEAL OEDEMA [None]
  - SUFFOCATION FEELING [None]
  - SWOLLEN TONGUE [None]
  - TONGUE OEDEMA [None]
